FAERS Safety Report 9645084 (Version 1)
Quarter: 2013Q4

REPORT INFORMATION
  Report Type: Spontaneous
  Country: US (occurrence: US)
  Receive Date: 20131025
  Receipt Date: 20131025
  Transmission Date: 20140711
  Serious: Yes (Other)
  Sender: FDA-Public Use
  Company Number: US-009507513-1310USA007740

PATIENT
  Sex: Female

DRUGS (3)
  1. VYTORIN [Suspect]
     Route: 048
  2. MIRALAX [Concomitant]
     Route: 048
  3. CALCIUM (UNSPECIFIED) [Concomitant]

REACTIONS (5)
  - Spinal operation [Unknown]
  - Spinal fracture [Unknown]
  - Loss of consciousness [Unknown]
  - Fall [Unknown]
  - Ankle fracture [Unknown]
